FAERS Safety Report 15385286 (Version 2)
Quarter: 2019Q2

REPORT INFORMATION
  Report Type: Report from Study
  Country: US (occurrence: US)
  Receive Date: 20180914
  Receipt Date: 20190611
  Transmission Date: 20190711
  Serious: No
  Sender: FDA-Public Use
  Company Number: US-SA-2018SA256905

PATIENT
  Age: 56 Year
  Sex: Male

DRUGS (3)
  1. SARILUMAB [Suspect]
     Active Substance: SARILUMAB
     Indication: RHEUMATOID ARTHRITIS
     Dosage: 200 MG, QOW
     Route: 058
     Dates: start: 2018, end: 20190331
  2. SARILUMAB [Suspect]
     Active Substance: SARILUMAB
     Dosage: UNK UNK, QOW
     Route: 058
     Dates: start: 20190531
  3. ADMELOG [Concomitant]
     Active Substance: INSULIN LISPRO

REACTIONS (6)
  - Injection site swelling [Not Recovered/Not Resolved]
  - Malaise [Unknown]
  - Injection site pruritus [Not Recovered/Not Resolved]
  - Injection site erythema [Not Recovered/Not Resolved]
  - Injection site reaction [Unknown]
  - Injection site warmth [Not Recovered/Not Resolved]

NARRATIVE: CASE EVENT DATE: 20180531
